FAERS Safety Report 22012649 (Version 1)
Quarter: 2023Q1

REPORT INFORMATION
  Report Type: Spontaneous
  Country: US (occurrence: US)
  Receive Date: 20230220
  Receipt Date: 20230220
  Transmission Date: 20230417
  Serious: No
  Sender: FDA-Public Use
  Company Number: US-ELI_LILLY_AND_COMPANY-US202302003606

PATIENT
  Sex: Female

DRUGS (2)
  1. FORTEO [Suspect]
     Active Substance: TERIPARATIDE
     Indication: Osteoporosis
     Dosage: UNK UNK, UNKNOWN
     Route: 065
     Dates: start: 202211
  2. DIGOXIN [Suspect]
     Active Substance: DIGOXIN
     Indication: Palpitations
     Dosage: UNK UNK, UNKNOWN
     Route: 065
     Dates: start: 202203

REACTIONS (1)
  - Vision blurred [Recovering/Resolving]
